FAERS Safety Report 5748738-8 (Version None)
Quarter: 2008Q2

REPORT INFORMATION
  Report Type: 
  Country: None (occurrence: None)
  Receive Date: 20080521
  Receipt Date: 20080505
  Transmission Date: 20081010
  Serious: Yes (Hospitalization)
  Sender: FDA-Public Use
  Company Number: 8020810

PATIENT
  Age: 50 Year
  Sex: Female
  Weight: 62 kg

DRUGS (2)
  1. KEPPRA [Suspect]
     Indication: EPILEPSY
     Dosage: 1500 MG 3/D PO
     Route: 048
     Dates: start: 20010101, end: 20070301
  2. GABAPENTIN [Suspect]
     Indication: EPILEPSY
     Dosage: 800 MG PO
     Route: 048
     Dates: start: 20010101

REACTIONS (2)
  - CROHN'S DISEASE [None]
  - ILEUS [None]
